FAERS Safety Report 13495776 (Version 2)
Quarter: 2018Q2

REPORT INFORMATION
  Report Type: Report from Study
  Country: US (occurrence: US)
  Receive Date: 20170428
  Receipt Date: 20180402
  Transmission Date: 20180711
  Serious: Yes (Death, Hospitalization, Other)
  Sender: FDA-Public Use
  Company Number: US-ROCHE-1922013

PATIENT
  Age: 68 Year
  Sex: Female
  Weight: 53.8 kg

DRUGS (17)
  1. CMB305 [Suspect]
     Active Substance: INVESTIGATIONAL PRODUCT
     Indication: SYNOVIAL SARCOMA METASTATIC
     Dosage: DOSE: 1 X10^10 VG, LV305
     Route: 023
     Dates: start: 20161021, end: 20161229
  2. CMB305 [Suspect]
     Active Substance: INVESTIGATIONAL PRODUCT
     Dosage: LAST DOSE: 02/FEB/2017?G305 + LV305
     Route: 030
     Dates: start: 20161117, end: 20170110
  3. ATORVASTATIN [Concomitant]
     Active Substance: ATORVASTATIN
     Route: 048
     Dates: start: 2012
  4. ATEZOLIZUMAB. [Suspect]
     Active Substance: ATEZOLIZUMAB
     Indication: SYNOVIAL SARCOMA METASTATIC
     Route: 042
     Dates: start: 20161021, end: 20170202
  5. GABAPENTIN. [Concomitant]
     Active Substance: GABAPENTIN
     Route: 048
     Dates: start: 2015
  6. OXYCODONE [Concomitant]
     Active Substance: OXYCODONE
     Dosage: Q4-6H
     Route: 048
     Dates: start: 20170126, end: 20170221
  7. LOSARTAN. [Concomitant]
     Active Substance: LOSARTAN
     Route: 065
     Dates: start: 201511
  8. SCOPOLAMINE [Concomitant]
     Active Substance: SCOPOLAMINE
     Dosage: REPORTED AS: SCOPOLAMINE PATCH?1 PATCH
     Route: 065
     Dates: start: 20170130
  9. SPIRONOLACTONE. [Concomitant]
     Active Substance: SPIRONOLACTONE
     Dosage: G305 + LV305
     Route: 048
     Dates: start: 201511
  10. FUROSEMIDE. [Concomitant]
     Active Substance: FUROSEMIDE
     Route: 048
     Dates: start: 2015, end: 20170212
  11. ATIVAN [Concomitant]
     Active Substance: LORAZEPAM
     Route: 048
     Dates: start: 20170126
  12. CMB305 [Suspect]
     Active Substance: INVESTIGATIONAL PRODUCT
     Dosage: G305 + LV305
     Route: 030
     Dates: start: 20161117, end: 20170110
  13. TRAMADOL. [Concomitant]
     Active Substance: TRAMADOL
     Route: 065
     Dates: start: 2015
  14. METOCLOPRAMIDE. [Concomitant]
     Active Substance: METOCLOPRAMIDE
     Route: 048
     Dates: start: 20170130
  15. CARVEDILOL. [Concomitant]
     Active Substance: CARVEDILOL
     Route: 048
     Dates: start: 201511
  16. FUROSEMIDE. [Concomitant]
     Active Substance: FUROSEMIDE
     Route: 048
     Dates: start: 20170212
  17. ZOFRAN [Concomitant]
     Active Substance: ONDANSETRON HYDROCHLORIDE
     Route: 048
     Dates: start: 20170126

REACTIONS (2)
  - Cardiac failure congestive [Unknown]
  - Acute left ventricular failure [Recovered/Resolved]

NARRATIVE: CASE EVENT DATE: 20170219
